FAERS Safety Report 6964435-5 (Version None)
Quarter: 2010Q3

REPORT INFORMATION
  Report Type: 
  Country: None (occurrence: None)
  Receive Date: 20100903
  Receipt Date: 20100823
  Transmission Date: 20110219
  Serious: Yes (Hospitalization, Congenital Anomaly)
  Sender: FDA-Public Use
  Company Number: FR-PFIZER INC-2010106335

PATIENT
  Sex: Male

DRUGS (2)
  1. ZOLOFT [Suspect]
     Dosage: 25 MG/DAY
     Route: 064
  2. SUFENTA PRESERVATIVE FREE [Suspect]
     Dosage: UNK
     Route: 064

REACTIONS (6)
  - CYANOSIS [None]
  - DRUG EXPOSURE DURING PREGNANCY [None]
  - HEART RATE DECREASED [None]
  - HYPOREFLEXIA [None]
  - HYPOTONIA [None]
  - HYPOVENTILATION [None]
